FAERS Safety Report 10262161 (Version 1)
Quarter: 2014Q2

REPORT INFORMATION
  Report Type: Spontaneous
  Country: TW (occurrence: TW)
  Receive Date: 20140626
  Receipt Date: 20140626
  Transmission Date: 20141212
  Serious: Yes (Other)
  Sender: FDA-Public Use
  Company Number: PHHY2014TW075863

PATIENT
  Sex: Male

DRUGS (2)
  1. BUPROPION [Suspect]
     Indication: MAJOR DEPRESSION
     Dosage: 150 MG/DAY
  2. BUPROPION [Suspect]
     Dosage: 300 MG/DAY

REACTIONS (2)
  - Sexual dysfunction [Unknown]
  - Erectile dysfunction [Unknown]
